FAERS Safety Report 24021617 (Version 1)
Quarter: 2024Q2

REPORT INFORMATION
  Report Type: Spontaneous
  Country: US (occurrence: US)
  Receive Date: 20240627
  Receipt Date: 20240627
  Transmission Date: 20240716
  Serious: Yes (Other)
  Sender: FDA-Public Use
  Company Number: US-MALLINCKRODT-MNK202404098

PATIENT
  Sex: Female

DRUGS (4)
  1. NITRIC OXIDE [Suspect]
     Active Substance: NITRIC OXIDE
     Indication: Pulmonary hypertension
     Dosage: UNKNOWN
     Route: 055
  2. NITRIC OXIDE [Suspect]
     Active Substance: NITRIC OXIDE
     Indication: Respiratory failure
  3. MILRINONE [MILRINONE LACTATE] [Concomitant]
     Indication: Respiratory failure
     Dosage: UNKNOWN
  4. MILRINONE [MILRINONE LACTATE] [Concomitant]
     Indication: Pulmonary hypertension

REACTIONS (1)
  - Interstitial lung disease [Unknown]
